FAERS Safety Report 8604228-6 (Version None)
Quarter: 2012Q3

REPORT INFORMATION
  Report Type: 
  Country: None (occurrence: None)
  Receive Date: 20120820
  Receipt Date: 20120813
  Transmission Date: 20120928
  Serious: No
  Sender: FDA-Public Use
  Company Number: US-PFIZER INC-2012161484

PATIENT
  Age: 73 Year
  Sex: Female

DRUGS (2)
  1. TARCEVA [Concomitant]
     Dosage: 150 MG, ONE DAILY
     Route: 048
  2. XALKORI [Suspect]
     Indication: NON-SMALL CELL LUNG CANCER
     Dosage: 250 MG, 2X/DAY
     Route: 048
     Dates: start: 20120611, end: 20120616

REACTIONS (5)
  - DIARRHOEA [None]
  - NAUSEA [None]
  - VOMITING [None]
  - PAIN IN JAW [None]
  - CHEST PAIN [None]
